FAERS Safety Report 9627028 (Version 1)
Quarter: 2013Q4

REPORT INFORMATION
  Report Type: Spontaneous
  Country: US (occurrence: None)
  Receive Date: 20131011
  Receipt Date: 20131011
  Transmission Date: 20140711
  Serious: Yes (Life-Threatening, Hospitalization, Other)
  Sender: FDA-Public Use
  Company Number: 1713747-2013-99955

PATIENT
  Age: 64 Year
  Sex: Male

DRUGS (1)
  1. 0.9% SODIUM CHLORIDE [Suspect]
     Indication: FLUID REPLACEMENT
     Dates: start: 20120630

REACTIONS (3)
  - Supraventricular tachycardia [None]
  - Chest pain [None]
  - Middle insomnia [None]
